FAERS Safety Report 21252991 (Version 1)
Quarter: 2022Q3

REPORT INFORMATION
  Report Type: Spontaneous
  Country: US (occurrence: US)
  Receive Date: 20220825
  Receipt Date: 20220825
  Transmission Date: 20221027
  Serious: Yes (Other)
  Sender: FDA-Public Use
  Company Number: US-APOTEX-2022AP011925

PATIENT
  Age: 46 Year
  Sex: Male

DRUGS (1)
  1. LEVOFLOXACIN [Suspect]
     Active Substance: LEVOFLOXACIN
     Indication: Product used for unknown indication
     Dosage: UNK
     Route: 065

REACTIONS (6)
  - Type I hypersensitivity [Unknown]
  - Anaphylactic reaction [Unknown]
  - Pharyngeal swelling [Unknown]
  - Rash [Unknown]
  - Pyrexia [Unknown]
  - Myalgia [Unknown]
